FAERS Safety Report 12092703 (Version 1)
Quarter: 2016Q1

REPORT INFORMATION
  Report Type: Spontaneous
  Country: US (occurrence: US)
  Receive Date: 20160219
  Receipt Date: 20160219
  Transmission Date: 20160526
  Serious: Yes (Other)
  Sender: FDA-Public Use
  Company Number: US-BRISTOL-MYERS SQUIBB COMPANY-BMS-2016-009768

PATIENT
  Sex: Male

DRUGS (1)
  1. SPRYCEL [Suspect]
     Active Substance: DASATINIB
     Indication: LEUKAEMIA
     Dosage: 100 MG, QD
     Route: 048
     Dates: start: 20130320

REACTIONS (6)
  - Dyspnoea [Unknown]
  - Hypertension [Unknown]
  - Disorientation [Unknown]
  - Heart rate increased [Unknown]
  - Myocardial infarction [Unknown]
  - Dizziness [Unknown]
